FAERS Safety Report 23676027 (Version 12)
Quarter: 2025Q3

REPORT INFORMATION
  Report Type: Spontaneous
  Country: US (occurrence: US)
  Receive Date: 20240327
  Receipt Date: 20250917
  Transmission Date: 20251020
  Serious: Yes (Other)
  Sender: TAKEDA
  Company Number: US-TAKEDA-2024TUS027734

PATIENT
  Sex: Female

DRUGS (20)
  1. ENTYVIO [Suspect]
     Active Substance: VEDOLIZUMAB
     Indication: Colitis ulcerative
     Dosage: 300 MILLIGRAM, Q5WEEKS
  2. ENTYVIO [Suspect]
     Active Substance: VEDOLIZUMAB
     Dosage: 300 MILLIGRAM, Q2WEEKS
  3. ENTYVIO [Suspect]
     Active Substance: VEDOLIZUMAB
  4. ENTYVIO [Suspect]
     Active Substance: VEDOLIZUMAB
  5. ENTYVIO [Suspect]
     Active Substance: VEDOLIZUMAB
     Dosage: 300 MILLIGRAM, Q5WEEKS
  6. ENTYVIO [Suspect]
     Active Substance: VEDOLIZUMAB
     Dosage: 300 MILLIGRAM, Q5WEEKS
  7. ENTYVIO [Suspect]
     Active Substance: VEDOLIZUMAB
     Dosage: 300 MILLIGRAM, Q5WEEKS
  8. ENTYVIO [Suspect]
     Active Substance: VEDOLIZUMAB
     Dosage: 300 MILLIGRAM, Q5WEEKS
  9. ENTYVIO [Suspect]
     Active Substance: VEDOLIZUMAB
     Dosage: 300 MILLIGRAM, Q5WEEKS
  10. ENTYVIO [Suspect]
     Active Substance: VEDOLIZUMAB
     Dosage: 300 MILLIGRAM, Q5WEEKS
  11. PHENERGAN [Concomitant]
     Active Substance: PROMETHAZINE HYDROCHLORIDE
  12. WELLBUTRIN XL [Concomitant]
     Active Substance: BUPROPION HYDROCHLORIDE
  13. HUMULIN 70/30 [Concomitant]
     Active Substance: INSULIN HUMAN
  14. CRESTOR [Concomitant]
     Active Substance: ROSUVASTATIN CALCIUM
  15. SYNTHROID [Concomitant]
     Active Substance: LEVOTHYROXINE SODIUM
  16. FENOFIBRATE [Concomitant]
     Active Substance: FENOFIBRATE
  17. METOPROLOL TARTRATE [Concomitant]
     Active Substance: METOPROLOL TARTRATE
  18. VITAMINS [Concomitant]
     Active Substance: VITAMINS
  19. DICLOFENAC SODIUM [Concomitant]
     Active Substance: DICLOFENAC SODIUM
  20. LEXAPRO [Concomitant]
     Active Substance: ESCITALOPRAM OXALATE

REACTIONS (17)
  - Colitis ulcerative [Unknown]
  - Impaired gastric emptying [Unknown]
  - Rectal haemorrhage [Unknown]
  - Haematochezia [Unknown]
  - Oral disorder [Unknown]
  - Arthritis [Unknown]
  - Fall [Unknown]
  - Inappropriate schedule of product administration [Unknown]
  - Off label use [Unknown]
  - Stress [Unknown]
  - Diarrhoea [Unknown]
  - Acute sinusitis [Unknown]
  - Malaise [Unknown]
  - Abdominal distension [Unknown]
  - Arthralgia [Unknown]
  - Pruritus [Unknown]
  - Hepatic enzyme increased [Unknown]
